FAERS Safety Report 5215013-X (Version None)
Quarter: 2007Q1

REPORT INFORMATION
  Report Type: 
  Country: None (occurrence: None)
  Receive Date: 20070117
  Receipt Date: 20070109
  Transmission Date: 20070707
  Serious: Yes (Other)
  Sender: FDA-Public Use
  Company Number: GXKR2007GB00662

PATIENT
  Age: 78 Year
  Sex: Male

DRUGS (6)
  1. MIRTAZAPINE [Suspect]
     Dosage: 30 MG, ORAL
     Route: 048
     Dates: start: 20060623, end: 20060624
  2. DOXAZOSIN (DOXAZOSIN) [Concomitant]
  3. LORAZEPAM [Concomitant]
  4. RAMIPRIL [Concomitant]
  5. SIMVASTATIN [Concomitant]
  6. WARFARIN SODIUM [Concomitant]

REACTIONS (2)
  - VISION BLURRED [None]
  - VISUAL ACUITY REDUCED [None]
